FAERS Safety Report 6607131-6 (Version None)
Quarter: 2010Q1

REPORT INFORMATION
  Report Type: 
  Country: None (occurrence: None)
  Receive Date: 20100212
  Receipt Date: 20091029
  Transmission Date: 20100710
  Serious: Yes (Other)
  Sender: FDA-Public Use
  Company Number: 1000009779

PATIENT
  Age: 55 Year
  Sex: Female

DRUGS (6)
  1. SAVELLA [Suspect]
     Indication: FIBROMYALGIA
     Dosage: 12.5 MG (12.5 MG,1 IN 1 D),ORAL
     Route: 048
     Dates: start: 20090914, end: 20090914
  2. SAVELLA [Suspect]
     Indication: FIBROMYALGIA
     Dosage: 25 MG (12.5 MG,2 IN 1 D),ORAL
     Route: 048
     Dates: start: 20090915, end: 20090917
  3. LUNESTA (2 MILLIGRAM, TABLETS) [Concomitant]
  4. LIDODERM (5 PERCENT, POULTICE OR PATCH) [Concomitant]
  5. TYLENOL-500 [Concomitant]
  6. NORCO (TABLETS) [Concomitant]

REACTIONS (4)
  - CHEST PAIN [None]
  - HEADACHE [None]
  - HYPERTENSION [None]
  - HYPOAESTHESIA [None]
